FAERS Safety Report 7743445-4 (Version None)
Quarter: 2011Q3

REPORT INFORMATION
  Report Type: 
  Country: None (occurrence: None)
  Receive Date: 20110912
  Receipt Date: 20110906
  Transmission Date: 20111222
  Serious: Yes (Hospitalization, Other)
  Sender: FDA-Public Use
  Company Number: NL-ASTRAZENECA-2011SE44330

PATIENT
  Age: 68 Year
  Sex: Male

DRUGS (11)
  1. ROSUVASTATINE [Suspect]
     Indication: HYPERCHOLESTEROLAEMIA
     Route: 048
     Dates: end: 20110725
  2. BISOPROLOL FUMARATE [Concomitant]
  3. ASCAL [Concomitant]
     Indication: ANGIOPATHY
     Route: 048
  4. PREDNISOLONE [Concomitant]
  5. HYDROCHLOROTHIAZIDE [Concomitant]
  6. ROSUVASTATINE [Suspect]
     Route: 048
     Dates: start: 20110727
  7. CELLCEPT [Concomitant]
     Indication: TRANSPLANT REJECTION
     Route: 048
  8. AMLODIPINE [Concomitant]
  9. METFORMIN HCL [Concomitant]
     Indication: TYPE 2 DIABETES MELLITUS
     Route: 048
  10. CYCLOSPORINE [Concomitant]
     Indication: TRANSPLANT REJECTION
     Route: 048
  11. OMEPRAZOLE [Concomitant]

REACTIONS (2)
  - CHEST PAIN [None]
  - LIVER FUNCTION TEST ABNORMAL [None]
